FAERS Safety Report 24310160 (Version 1)
Quarter: 2024Q3

REPORT INFORMATION
  Report Type: Spontaneous
  Country: NL (occurrence: NL)
  Receive Date: 20240912
  Receipt Date: 20240912
  Transmission Date: 20241016
  Serious: Yes (Other)
  Sender: TEVA
  Company Number: None

PATIENT
  Age: 64 Year
  Sex: Female
  Weight: 82 kg

DRUGS (3)
  1. METHOTREXATE [Suspect]
     Active Substance: METHOTREXATE
     Indication: Psoriatic arthropathy
     Dosage: REDUCED TO 4 PIECES PER WEEK, METHOTREXAAT BRAND NAME NOT SPECIFIED
     Route: 065
  2. METHOTREXATE [Suspect]
     Active Substance: METHOTREXATE
     Indication: Psoriatic arthropathy
     Dosage: 10 PIECES PER WEEK REDUCED TO 4 PIECES  ;METHOTREXAAT BRAND NAME NOT SPECIFIED
     Route: 065
     Dates: start: 19981121
  3. PRAMIPEXOLE [Concomitant]
     Active Substance: PRAMIPEXOLE\PRAMIPEXOLE DIHYDROCHLORIDE
     Indication: Product used for unknown indication
     Dosage: MGA (1.05MG BASE) / BRAND NAME NOT SPECIFIED
     Route: 065

REACTIONS (1)
  - Transitional cell carcinoma [Not Recovered/Not Resolved]
